FAERS Safety Report 11805674 (Version 2)
Quarter: 2016Q2

REPORT INFORMATION
  Report Type: Other
  Country: GB (occurrence: GB)
  Receive Date: 20151207
  Receipt Date: 20160630
  Transmission Date: 20160815
  Serious: Yes (Hospitalization)
  Sender: FDA-Public Use
  Company Number: GB-LUPIN PHARMACEUTICALS INC.-E2B_00004475

PATIENT
  Age: 68 Year
  Sex: Male
  Weight: 89 kg

DRUGS (3)
  1. ZAMADOL [Suspect]
     Active Substance: TRAMADOL HYDROCHLORIDE
     Indication: PRODUCT USED FOR UNKNOWN INDICATION
     Route: 065
     Dates: start: 20151023
  2. EMSELEX /01760401/ [Suspect]
     Active Substance: DARIFENACIN HYDROBROMIDE
     Indication: MICTURITION URGENCY
     Route: 048
     Dates: start: 20150924
  3. SIMVASTATIN. [Suspect]
     Active Substance: SIMVASTATIN
     Indication: PRODUCT USED FOR UNKNOWN INDICATION
     Route: 065
     Dates: start: 20151023

REACTIONS (2)
  - Pruritus generalised [Recovered/Resolved]
  - Dizziness [Recovered/Resolved]

NARRATIVE: CASE EVENT DATE: 20151023
